FAERS Safety Report 7748232-9 (Version None)
Quarter: 2011Q3

REPORT INFORMATION
  Report Type: 
  Country: None (occurrence: None)
  Receive Date: 20110913
  Receipt Date: 20110906
  Transmission Date: 20111222
  Serious: Yes (Hospitalization)
  Sender: FDA-Public Use
  Company Number: ES-AMGEN-UK381436

PATIENT
  Age: 60 Year
  Sex: Female
  Weight: 78 kg

DRUGS (28)
  1. METAMIZOLE [Concomitant]
     Indication: OESOPHAGITIS
     Route: 042
     Dates: start: 20090726, end: 20090803
  2. DURAGESIC-100 [Concomitant]
     Indication: PAIN
     Route: 062
     Dates: start: 20090519
  3. OMEPRAZOLE [Concomitant]
     Indication: OESOPHAGITIS
     Dosage: UNK
     Route: 048
     Dates: start: 20090725, end: 20090810
  4. ENANTYUM [Concomitant]
     Indication: OESOPHAGITIS
     Route: 048
     Dates: start: 20090718, end: 20090718
  5. DOXYCYCLINE [Concomitant]
     Indication: DERMATITIS
     Dosage: 100 MG, UNK
     Route: 048
     Dates: start: 20090519
  6. HYDROCORTISONE [Concomitant]
     Indication: DERMATITIS
     Dosage: UNK
     Route: 061
     Dates: start: 20090519
  7. OXALIPLATIN [Suspect]
     Dosage: UNK UNK, UNK
     Route: 041
     Dates: start: 20090519, end: 20090825
  8. LIDOCAINE [Concomitant]
     Indication: MUCOSAL INFLAMMATION
     Dosage: UNK
     Route: 048
     Dates: start: 20090605, end: 20090627
  9. PREDNISONE [Concomitant]
     Indication: MUCOSAL INFLAMMATION
     Dosage: UNK
     Route: 048
     Dates: start: 20090603, end: 20090915
  10. POTASSIUM CHLORIDE [Concomitant]
     Indication: OESOPHAGITIS
     Route: 042
     Dates: start: 20090720, end: 20090803
  11. AMOXICILLIN AND CLAVULANATE POTASSIUM [Concomitant]
     Indication: OESOPHAGITIS
     Route: 042
     Dates: start: 20090720, end: 20090725
  12. SUCRALFATE [Concomitant]
     Indication: OESOPHAGITIS
     Dosage: UNK
     Route: 048
     Dates: start: 20090720, end: 20090722
  13. LEUCOVORIN CALCIUM [Suspect]
     Dosage: UNK UNK, UNK
     Route: 041
     Dates: start: 20090519, end: 20090825
  14. LEVOTHYROXINE SODIUM [Concomitant]
     Indication: HYPOTHYROIDISM
     Dosage: UNK
     Route: 048
     Dates: start: 20090304
  15. IBUPROFEN [Concomitant]
     Indication: BACK PAIN
     Route: 048
     Dates: start: 20090630
  16. FERROUS SULFATE TAB [Concomitant]
     Indication: ANAEMIA
     Route: 048
     Dates: start: 20090602
  17. FLUOROURACIL [Suspect]
     Dosage: UNK UNK, UNK
     Route: 041
     Dates: start: 20090519, end: 20090825
  18. MYCOSTATIN [Concomitant]
     Indication: MUCOSAL INFLAMMATION
     Dosage: UNK
     Dates: start: 20090531, end: 20090718
  19. FLUCONAZOLE [Concomitant]
     Indication: OESOPHAGITIS
     Route: 042
     Dates: start: 20090720, end: 20090725
  20. CARVEDILOL [Concomitant]
     Indication: HYPERTENSION
     Route: 048
  21. LORAZEPAM [Concomitant]
     Indication: OESOPHAGITIS
     Dosage: UNK
     Route: 048
     Dates: start: 20090723, end: 20090803
  22. ACETAMINOPHEN [Concomitant]
     Indication: OESOPHAGITIS
     Route: 042
     Dates: start: 20090726, end: 20090803
  23. PANITUMUMAB [Suspect]
     Indication: COLORECTAL CANCER METASTATIC
     Dosage: 384 MG, Q2WK
     Route: 042
     Dates: start: 20090519, end: 20090825
  24. PANTOPRAZOLE [Concomitant]
     Dosage: UNK UNK, QD
     Dates: start: 20090407, end: 20090829
  25. KETOROLAC TROMETHAMINE [Concomitant]
     Indication: OESOPHAGITIS
     Dosage: UNK
     Route: 048
     Dates: start: 20090720, end: 20090723
  26. METHYLPREDNISOLONE [Concomitant]
     Indication: OESOPHAGITIS
     Route: 042
     Dates: start: 20090720, end: 20090724
  27. CIPROFLOXACIN [Concomitant]
     Indication: OESOPHAGITIS
     Dosage: 500 MG, UNK
     Route: 042
     Dates: start: 20090727, end: 20090828
  28. CIPROFLOXACIN [Concomitant]
     Indication: MUCOSAL INFLAMMATION

REACTIONS (1)
  - DIARRHOEA [None]
